FAERS Safety Report 7846741-5 (Version None)
Quarter: 2011Q4

REPORT INFORMATION
  Report Type: 
  Country: None (occurrence: None)
  Receive Date: 20111025
  Receipt Date: 20111018
  Transmission Date: 20120403
  Serious: Yes (Other)
  Sender: FDA-Public Use
  Company Number: PHHY2011CA74544

PATIENT
  Sex: Female

DRUGS (1)
  1. GILENYA [Suspect]
     Indication: RELAPSING-REMITTING MULTIPLE SCLEROSIS
     Dosage: 0.5 MG, DAILY
     Route: 048
     Dates: start: 20110811

REACTIONS (6)
  - EAR INFECTION [None]
  - PYREXIA [None]
  - NAUSEA [None]
  - SINUSITIS [None]
  - BRONCHITIS [None]
  - DIZZINESS [None]
